FAERS Safety Report 16876140 (Version 1)
Quarter: 2019Q4

REPORT INFORMATION
  Report Type: Spontaneous
  Country: US (occurrence: US)
  Receive Date: 20191002
  Receipt Date: 20191002
  Transmission Date: 20200122
  Serious: No
  Sender: FDA-Public Use
  Company Number: US-GW PHARMA-201908USGW3124

PATIENT

DRUGS (1)
  1. EPIDIOLEX [Suspect]
     Active Substance: CANNABIDIOL
     Indication: LENNOX-GASTAUT SYNDROME
     Dosage: 40 MILLIGRAM, BID
     Route: 048
     Dates: start: 20190812, end: 20190829

REACTIONS (5)
  - Dyspnoea [Unknown]
  - Dysphagia [Unknown]
  - Sedation [Unknown]
  - Choking [Unknown]
  - Retching [Unknown]

NARRATIVE: CASE EVENT DATE: 201908
